FAERS Safety Report 6500366-2 (Version None)
Quarter: 2009Q4

REPORT INFORMATION
  Report Type: 
  Country: None (occurrence: None)
  Receive Date: 20091216
  Receipt Date: 20091204
  Transmission Date: 20100525
  Serious: Yes (Hospitalization, Other)
  Sender: FDA-Public Use
  Company Number: PHHY2008CA14628

PATIENT
  Sex: Male

DRUGS (10)
  1. CLOZARIL [Suspect]
     Indication: SCHIZOPHRENIA, PARANOID TYPE
     Dosage: 25 MG, AM
     Route: 048
     Dates: start: 20000101
  2. CLOZARIL [Suspect]
     Dosage: 287.5 MG, QHS
     Dates: start: 20030319
  3. LIPITOR [Suspect]
     Dosage: 10 MG, HS
     Route: 048
  4. ZYPREXA ZYDIS [Suspect]
     Dosage: 10 MG, QHS
     Route: 048
  5. ASPIRIN [Concomitant]
     Dosage: 80 MG, AM
     Route: 048
  6. EPIVAL [Concomitant]
     Dosage: 1000 MG, QHS
     Route: 048
  7. LOXAPAC [Concomitant]
     Dosage: 35 MG, TID
     Route: 048
  8. AVANDIA [Concomitant]
     Dosage: 4 MG, AM
     Route: 048
  9. DIABETA [Concomitant]
     Dosage: UNK
     Route: 048
  10. GLUCOPHAGE [Concomitant]
     Dosage: 850 MG, TID

REACTIONS (8)
  - BLOOD CHOLESTEROL INCREASED [None]
  - BLOOD CREATINE PHOSPHOKINASE INCREASED [None]
  - BODY TEMPERATURE DECREASED [None]
  - CONSTIPATION [None]
  - DEHYDRATION [None]
  - DIABETES MELLITUS [None]
  - HYPOTHYROIDISM [None]
  - RHABDOMYOLYSIS [None]
